FAERS Safety Report 6544499-3 (Version None)
Quarter: 2010Q1

REPORT INFORMATION
  Report Type: 
  Country: None (occurrence: None)
  Receive Date: 20100120
  Receipt Date: 20100120
  Transmission Date: 20100710
  Serious: Yes (Hospitalization)
  Sender: FDA-Public Use
  Company Number: None

PATIENT
  Age: 59 Year
  Sex: Female
  Weight: 64 kg

DRUGS (5)
  1. TRUVADA [Suspect]
     Indication: HIV INFECTION
     Dosage: 1 TABLET HS PO
     Route: 048
     Dates: start: 20090901, end: 20091231
  2. ATRIPLA [Concomitant]
  3. COLCHININE [Concomitant]
  4. FERROUS SULFATE TAB [Concomitant]
  5. LEVAQUIN [Concomitant]

REACTIONS (6)
  - ABDOMINAL PAIN [None]
  - BLOOD CREATININE INCREASED [None]
  - DEHYDRATION [None]
  - DIARRHOEA [None]
  - NAUSEA [None]
  - VOMITING [None]
